FAERS Safety Report 10005777 (Version 2)
Quarter: 2014Q1

REPORT INFORMATION
  Report Type: Spontaneous
  Country: US (occurrence: US)
  Receive Date: 20140313
  Receipt Date: 20140325
  Transmission Date: 20141002
  Serious: No
  Sender: FDA-Public Use
  Company Number: US-BIOGENIDEC-2014BI021462

PATIENT
  Age: 49 Year
  Sex: Female

DRUGS (11)
  1. TECFIDERA [Suspect]
     Indication: MULTIPLE SCLEROSIS
     Route: 048
     Dates: start: 20140110, end: 20140116
  2. TECFIDERA [Suspect]
     Indication: MULTIPLE SCLEROSIS
     Route: 048
     Dates: start: 20140117
  3. LIDODERM [Concomitant]
  4. IBUPROFEN [Concomitant]
  5. ADVIL [Concomitant]
  6. NAPROXEN [Concomitant]
  7. VITAMIN C [Concomitant]
  8. VITAMIN D [Concomitant]
  9. VITAMIN B [Concomitant]
  10. ECHANASIA [Concomitant]
  11. FISH OIL [Concomitant]

REACTIONS (8)
  - Dysgeusia [Not Recovered/Not Resolved]
  - Breath odour [Unknown]
  - Hyperhidrosis [Not Recovered/Not Resolved]
  - Fatigue [Not Recovered/Not Resolved]
  - Flushing [Unknown]
  - Erythema [Not Recovered/Not Resolved]
  - Hot flush [Not Recovered/Not Resolved]
  - Gastritis [Not Recovered/Not Resolved]
